FAERS Safety Report 5052796-6 (Version None)
Quarter: 2006Q3

REPORT INFORMATION
  Report Type: 
  Country: None (occurrence: None)
  Receive Date: 20060717
  Receipt Date: 20060531
  Transmission Date: 20061208
  Serious: Yes (Other)
  Sender: FDA-Public Use
  Company Number: DE-BRISTOL-MYERS SQUIBB COMPANY-13400189

PATIENT
  Sex: Male

DRUGS (1)
  1. KARVEA [Suspect]

REACTIONS (4)
  - AGEUSIA [None]
  - ANOREXIA [None]
  - HEPATIC NEOPLASM MALIGNANT [None]
  - WEIGHT DECREASED [None]
